FAERS Safety Report 16896700 (Version 1)
Quarter: 2019Q4

REPORT INFORMATION
  Report Type: Report from Study
  Country: CA (occurrence: CA)
  Receive Date: 20191008
  Receipt Date: 20191008
  Transmission Date: 20200122
  Serious: Yes (Other)
  Sender: FDA-Public Use
  Company Number: CA-BEH-2019107794

PATIENT
  Age: 5 Year
  Sex: Male

DRUGS (2)
  1. HAEMATE P [Suspect]
     Active Substance: ANTIHEMOPHILIC FACTOR HUMAN
     Indication: FACTOR VIII DEFICIENCY
     Dosage: 2000 RCOF, BIW
     Route: 042
  2. HAEMATE P [Suspect]
     Active Substance: ANTIHEMOPHILIC FACTOR HUMAN
     Indication: FACTOR VIII DEFICIENCY
     Dosage: 2000 RCOF, BIW
     Route: 042

REACTIONS (4)
  - Haemorrhage [Recovered/Resolved]
  - Mobility decreased [Not Recovered/Not Resolved]
  - Irritability [Not Recovered/Not Resolved]
  - Fatigue [Not Recovered/Not Resolved]

NARRATIVE: CASE EVENT DATE: 201908
